FAERS Safety Report 21243553 (Version 1)
Quarter: 2022Q3

REPORT INFORMATION
  Report Type: Spontaneous
  Country: AT (occurrence: AT)
  Receive Date: 20220823
  Receipt Date: 20220823
  Transmission Date: 20221027
  Serious: Yes (Other)
  Sender: FDA-Public Use
  Company Number: None

PATIENT
  Age: 57 Year
  Sex: Female
  Weight: 80 kg

DRUGS (9)
  1. CIPROFLOXACIN [Suspect]
     Active Substance: CIPROFLOXACIN
     Indication: Incision site cellulitis
     Dosage: 500 MG, Q8HR
     Route: 048
     Dates: start: 20200131, end: 20200204
  2. CIPROFLOXACIN [Suspect]
     Active Substance: CIPROFLOXACIN
     Indication: Bacterial infection
     Dosage: 500 MG, BID
     Route: 048
     Dates: start: 20200309, end: 20200413
  3. CIPROFLOXACIN [Suspect]
     Active Substance: CIPROFLOXACIN
     Indication: Incision site cellulitis
     Dosage: 400MG 3XTGL. I.V.
     Route: 042
     Dates: start: 20200204, end: 20200208
  4. CIPROFLOXACIN [Suspect]
     Active Substance: CIPROFLOXACIN
     Indication: Nosocomial infection
  5. PREDNISOLONE [Concomitant]
     Active Substance: PREDNISOLONE
  6. AVELOX [Concomitant]
     Active Substance: MOXIFLOXACIN HYDROCHLORIDE
     Indication: Incision site cellulitis
     Dosage: 400MG I.V. 1X T?GLICH
     Route: 042
     Dates: start: 20200209, end: 20200213
  7. AVELOX [Concomitant]
     Active Substance: MOXIFLOXACIN HYDROCHLORIDE
     Indication: Nosocomial infection
  8. AVELOX [Concomitant]
     Active Substance: MOXIFLOXACIN HYDROCHLORIDE
     Indication: Incision site cellulitis
     Dosage: 1 DF, QD
     Route: 048
     Dates: end: 20200308
  9. AVELOX [Concomitant]
     Active Substance: MOXIFLOXACIN HYDROCHLORIDE
     Indication: Nosocomial infection

REACTIONS (6)
  - Quality of life decreased [Not Recovered/Not Resolved]
  - Myalgia [Not Recovered/Not Resolved]
  - Pain in extremity [Not Recovered/Not Resolved]
  - Insomnia [Not Recovered/Not Resolved]
  - Musculoskeletal pain [Not Recovered/Not Resolved]
  - Pain [Not Recovered/Not Resolved]

NARRATIVE: CASE EVENT DATE: 20200101
